FAERS Safety Report 16359650 (Version 1)
Quarter: 2019Q2

REPORT INFORMATION
  Report Type: Report from Study
  Country: EC (occurrence: EC)
  Receive Date: 20190528
  Receipt Date: 20190528
  Transmission Date: 20190711
  Serious: Yes (Other)
  Sender: FDA-Public Use
  Company Number: EC-ROCHE-2315896

PATIENT
  Sex: Female

DRUGS (1)
  1. BONDRONAT [IBANDRONATE SODIUM] [Suspect]
     Active Substance: IBANDRONATE SODIUM
     Indication: PRODUCT USED FOR UNKNOWN INDICATION
     Route: 042

REACTIONS (4)
  - Back pain [Unknown]
  - Deafness [Unknown]
  - Pain in extremity [Unknown]
  - Pain [Unknown]
